FAERS Safety Report 5615704-2 (Version None)
Quarter: 2008Q1

REPORT INFORMATION
  Report Type: 
  Country: None (occurrence: None)
  Receive Date: 20080206
  Receipt Date: 20080124
  Transmission Date: 20080703
  Serious: Yes (Hospitalization)
  Sender: FDA-Public Use
  Company Number: ES-JNJFOC-20080105869

PATIENT
  Age: 89 Year
  Sex: Female

DRUGS (3)
  1. TAVANIC [Suspect]
     Indication: BRONCHITIS
     Route: 042
  2. ACETAMINOPHEN [Suspect]
     Route: 048
  3. ACETAMINOPHEN [Suspect]
     Indication: DRUG USE FOR UNKNOWN INDICATION
     Route: 048

REACTIONS (1)
  - THROMBOCYTOPENIA [None]
